FAERS Safety Report 24834371 (Version 1)
Quarter: 2025Q1

REPORT INFORMATION
  Report Type: Spontaneous
  Country: US (occurrence: None)
  Receive Date: 20250110
  Receipt Date: 20250110
  Transmission Date: 20250409
  Serious: Yes (Death)
  Sender: FDA-CTU
  Company Number: None

PATIENT
  Age: 70 Year
  Sex: Male

DRUGS (9)
  1. MYCOPHENOLIC ACID [Suspect]
     Active Substance: MYCOPHENOLIC ACID
     Indication: Renal transplant
     Dosage: 360 MG BID ORAL
     Route: 048
     Dates: start: 20200314
  2. one touchultra blue test strips [Concomitant]
  3. toujeo solostar 300 [Concomitant]
  4. vitamin d3 2000 units cap [Concomitant]
  5. PREDNISONE [Concomitant]
     Active Substance: PREDNISONE
  6. ATORVASTATIN CALCIUM [Concomitant]
     Active Substance: ATORVASTATIN CALCIUM
  7. LOSARTAN POTASSIUM [Concomitant]
     Active Substance: LOSARTAN POTASSIUM
  8. carvedilol 3.125 mg tablets [Concomitant]
  9. prograf 0.2 mg oral caps [Concomitant]

REACTIONS (1)
  - Death [None]
